FAERS Safety Report 11236639 (Version 1)
Quarter: 2015Q3

REPORT INFORMATION
  Report Type: Spontaneous
  Country: BR (occurrence: BR)
  Receive Date: 20150703
  Receipt Date: 20150703
  Transmission Date: 20151125
  Serious: Yes (Other)
  Sender: FDA-Public Use
  Company Number: BR-BRISTOL-MYERS SQUIBB COMPANY-BMS-2015-041454

PATIENT
  Age: 14 Year
  Sex: Female

DRUGS (1)
  1. OMCILON-A [Suspect]
     Active Substance: TRIAMCINOLONE ACETONIDE
     Indication: ORAL DISORDER
     Dosage: UNK UNK, TID
     Route: 061
     Dates: start: 20150615

REACTIONS (1)
  - Hypersensitivity [Recovering/Resolving]

NARRATIVE: CASE EVENT DATE: 20150616
